FAERS Safety Report 21504496 (Version 1)
Quarter: 2022Q4

REPORT INFORMATION
  Report Type: Spontaneous
  Country: US (occurrence: US)
  Receive Date: 20221025
  Receipt Date: 20221025
  Transmission Date: 20230112
  Serious: No
  Sender: FDA-Public Use
  Company Number: US-ABBVIE-4169711

PATIENT
  Sex: Female

DRUGS (1)
  1. VENCLEXTA [Suspect]
     Active Substance: VENETOCLAX
     Indication: Chronic lymphocytic leukaemia
     Dosage: TAKE WITH A MEAL AND A FULL GLASS OF WATER. SWALLOW TAB WHOLE. DO NOT CRUSH, SPLIT, OR CHEW. FORM...
     Route: 048

REACTIONS (3)
  - Product use complaint [Unknown]
  - Choking [Unknown]
  - Cough [Unknown]
